FAERS Safety Report 23899084 (Version 1)
Quarter: 2024Q2

REPORT INFORMATION
  Report Type: Spontaneous
  Country: US (occurrence: US)
  Receive Date: 20240526
  Receipt Date: 20240526
  Transmission Date: 20240716
  Serious: Yes (Hospitalization, Other)
  Sender: FDA-Public Use
  Company Number: US-DRL-USA-LIT/USA/24/0007429

PATIENT
  Age: 15 Year
  Sex: Male

DRUGS (1)
  1. IBUPROFEN [Suspect]
     Active Substance: IBUPROFEN
     Indication: Product used for unknown indication
     Dosage: APPX 80 G (MORE THAN 1000 MG/KG)

REACTIONS (9)
  - Intentional overdose [Unknown]
  - Vasoplegia syndrome [Unknown]
  - Shock [Unknown]
  - Metabolic acidosis [Recovered/Resolved]
  - Oxygen saturation decreased [Recovered/Resolved]
  - Hypotension [Unknown]
  - Depressed level of consciousness [Unknown]
  - Circulatory collapse [Unknown]
  - Mental status changes [Unknown]
